FAERS Safety Report 13627661 (Version 1)
Quarter: 2017Q2

REPORT INFORMATION
  Report Type: Spontaneous
  Country: US (occurrence: US)
  Receive Date: 20170531
  Receipt Date: 20170531
  Transmission Date: 20170830
  Serious: Yes (Hospitalization)
  Sender: FDA-Public Use
  Company Number: US-ASTELLAS-1553611

PATIENT
  Age: 63 Year
  Sex: Female

DRUGS (1)
  1. TARCEVA [Suspect]
     Active Substance: ERLOTINIB HYDROCHLORIDE
     Indication: LUNG NEOPLASM MALIGNANT
     Dosage: 3 TABS (75 MG) PO EVERY DAY
     Route: 048
     Dates: start: 20150123

REACTIONS (9)
  - Vomiting [Not Recovered/Not Resolved]
  - Diarrhoea [Unknown]
  - Respiratory tract infection [Unknown]
  - Rash [Recovering/Resolving]
  - Nausea [Not Recovered/Not Resolved]
  - Pneumonia [Unknown]
  - Nail discolouration [Unknown]
  - Blister [Recovering/Resolving]
  - Productive cough [Unknown]

NARRATIVE: CASE EVENT DATE: 20150221
